FAERS Safety Report 17124475 (Version 1)
Quarter: 2019Q4

REPORT INFORMATION
  Report Type: Spontaneous
  Country: US (occurrence: US)
  Receive Date: 20191206
  Receipt Date: 20191206
  Transmission Date: 20200122
  Serious: No
  Sender: FDA-Public Use
  Company Number: US-NOVOPROD-690569

PATIENT
  Age: 66 Year
  Sex: Male

DRUGS (1)
  1. NOVOLIN 70/30 [Suspect]
     Active Substance: INSULIN HUMAN
     Indication: TYPE 2 DIABETES MELLITUS
     Dosage: 2 TO 4 UNITS TWICE A DAY
     Route: 058
     Dates: start: 201808

REACTIONS (4)
  - Neuropathy peripheral [Recovered/Resolved]
  - Product quality issue [Unknown]
  - Condition aggravated [Recovered/Resolved]
  - Blood glucose increased [Recovered/Resolved]

NARRATIVE: CASE EVENT DATE: 201906
